FAERS Safety Report 10985104 (Version 1)
Quarter: 2015Q2

REPORT INFORMATION
  Report Type: Spontaneous
  Country: US (occurrence: None)
  Receive Date: 20150403
  Receipt Date: 20150403
  Transmission Date: 20150821
  Serious: Yes (Death, Hospitalization)
  Sender: FDA-Public Use
  Company Number: None

PATIENT
  Age: 14 Year
  Sex: Female
  Weight: 70 kg

DRUGS (3)
  1. DAUNORUBICIN [Suspect]
     Active Substance: DAUNORUBICIN
     Dates: end: 20071009
  2. CYTARABINE. [Suspect]
     Active Substance: CYTARABINE
     Dates: end: 20071009
  3. ETOPOSIDE (VP-16) [Suspect]
     Active Substance: ETOPOSIDE
     Dates: end: 20071009

REACTIONS (4)
  - Pleural effusion [None]
  - Bone marrow disorder [None]
  - Disseminated intravascular coagulation [None]
  - Pulmonary congestion [None]

NARRATIVE: CASE EVENT DATE: 20071006
